FAERS Safety Report 20380646 (Version 1)
Quarter: 2022Q1

REPORT INFORMATION
  Report Type: Spontaneous
  Country: GB (occurrence: GB)
  Receive Date: 20220127
  Receipt Date: 20220127
  Transmission Date: 20220423
  Serious: Yes (Other)
  Sender: FDA-Public Use
  Company Number: None

PATIENT
  Age: 55 Year
  Sex: Female
  Weight: 70 kg

DRUGS (11)
  1. AMITRIPTYLINE [Interacting]
     Active Substance: AMITRIPTYLINE
     Indication: Product used for unknown indication
  2. PROCHLORPERAZINE MALEATE [Interacting]
     Active Substance: PROCHLORPERAZINE MALEATE
     Indication: Dizziness
     Route: 048
     Dates: start: 20211217, end: 20211227
  3. ETORICOXIB [Concomitant]
     Active Substance: ETORICOXIB
  4. BECLOMETHASONE\FORMOTEROL [Concomitant]
     Active Substance: BECLOMETHASONE\FORMOTEROL
  5. POTASSIUM BICARBONATE\SODIUM ALGINATE [Concomitant]
     Active Substance: POTASSIUM BICARBONATE\SODIUM ALGINATE
  6. ESTRADIOL, NORETHINDRONE ACETATE [Concomitant]
     Active Substance: ESTRADIOL\NORETHINDRONE ACETATE
  7. LOSARTAN POTASSIUM [Concomitant]
     Active Substance: LOSARTAN POTASSIUM
  8. LYMECYCLINE [Concomitant]
     Active Substance: LYMECYCLINE
  9. OMEPRAZOLE [Concomitant]
     Active Substance: OMEPRAZOLE
  10. ALBUTEROL [Concomitant]
     Active Substance: ALBUTEROL
  11. TRAMADOL HYDROCHLORIDE [Concomitant]
     Active Substance: TRAMADOL HYDROCHLORIDE

REACTIONS (2)
  - Hallucination, visual [Recovered/Resolved]
  - Labelled drug-drug interaction medication error [Unknown]

NARRATIVE: CASE EVENT DATE: 20211226
